FAERS Safety Report 4346198-5 (Version None)
Quarter: 2004Q2

REPORT INFORMATION
  Report Type: 
  Country: None (occurrence: None)
  Receive Date: 20040415
  Receipt Date: 20040406
  Transmission Date: 20050107
  Serious: Yes (Life-Threatening)
  Sender: FDA-Public Use
  Company Number: 2004-01404

PATIENT
  Age: 64 Year
  Sex: Male

DRUGS (1)
  1. IMMUCYST (BCG - IT (CONNAUGHT)), AVENTIS PASTEUR LTD., LOT NOT REP, IE [Suspect]
     Indication: BLADDER CANCER
     Dosage: B. IN., BLADDER
     Dates: start: 20040205

REACTIONS (3)
  - BOVINE TUBERCULOSIS [None]
  - LIVER DISORDER [None]
  - RENAL DISORDER [None]
